FAERS Safety Report 11095240 (Version 1)
Quarter: 2015Q2

REPORT INFORMATION
  Report Type: Spontaneous
  Country: US (occurrence: US)
  Receive Date: 20150506
  Receipt Date: 20150506
  Transmission Date: 20150821
  Serious: No
  Sender: FDA-Public Use
  Company Number: US-SA-2014SA130297

PATIENT
  Sex: Male

DRUGS (3)
  1. HUMALOG [Suspect]
     Active Substance: INSULIN LISPRO
     Dosage: DOSE: 10 UNITS, ANOTHER 3 UNITS
     Route: 065
  2. APIDRA [Suspect]
     Active Substance: INSULIN GLULISINE
     Indication: TYPE 1 DIABETES MELLITUS
     Dosage: DOSE:23.5 UNITS DAILY AND 7 UNITS AT BREAKFAST, 9 UNITS AT LUNCH AND 8 UNITS AT DINNER
     Route: 065
  3. APIDRA [Suspect]
     Active Substance: INSULIN GLULISINE
     Indication: TYPE 1 DIABETES MELLITUS
     Dosage: DOSE:ADDITIONAL 10 UNITS
     Route: 065

REACTIONS (2)
  - Drug ineffective [Unknown]
  - Muscle spasms [Unknown]
